FAERS Safety Report 10080705 (Version 1)
Quarter: 2014Q2

REPORT INFORMATION
  Report Type: Spontaneous
  Country: GB (occurrence: None)
  Receive Date: 20140414
  Receipt Date: 20140414
  Transmission Date: 20141212
  Serious: Yes (Disabling, Other)
  Sender: FDA-Public Use
  Company Number: AUR-APL-2014-04226

PATIENT
  Age: 71 Year
  Sex: Male

DRUGS (6)
  1. GABAPENTIN (GABAPENTIN) [Suspect]
     Indication: NEURALGIA
     Route: 048
     Dates: start: 20140131, end: 20140211
  2. GABAPENTIN (GABAPENTIN) [Suspect]
     Indication: PRODUCT USED FOR UNKNOWN INDICATION
     Route: 048
     Dates: start: 20140131, end: 20140211
  3. CYKLOKAPRON (TRANEXAMIC ACID) [Concomitant]
  4. FENTANYL (FENTANYL) [Concomitant]
  5. MORPHINE (MORPHINE) [Concomitant]
  6. ORAMORPH (MORPHINE SULFATE PENTAHYDRATE) [Concomitant]

REACTIONS (3)
  - Hypersensitivity [None]
  - Cough [None]
  - Lung neoplasm malignant [None]
